FAERS Safety Report 21550435 (Version 4)
Quarter: 2023Q2

REPORT INFORMATION
  Report Type: Report from Study
  Country: US (occurrence: US)
  Receive Date: 20221103
  Receipt Date: 20230410
  Transmission Date: 20230722
  Serious: Yes (Other)
  Sender: FDA-Public Use
  Company Number: US-002147023-NVSC2022US248153

PATIENT
  Age: 54 Year
  Sex: Male

DRUGS (1)
  1. ENTRESTO [Suspect]
     Active Substance: SACUBITRIL\VALSARTAN
     Indication: Product used for unknown indication
     Dosage: 1 DOSAGE FORM, QD, (24/26 MG)
     Route: 048
     Dates: start: 20221101

REACTIONS (7)
  - COVID-19 pneumonia [Recovered/Resolved]
  - Pneumonia [Recovering/Resolving]
  - Fatigue [Recovering/Resolving]
  - Decreased activity [Unknown]
  - Polyuria [Recovering/Resolving]
  - Underdose [Recovering/Resolving]
  - Inappropriate schedule of product administration [Unknown]

NARRATIVE: CASE EVENT DATE: 20230101
